FAERS Safety Report 4591099-0 (Version None)
Quarter: 2005Q1

REPORT INFORMATION
  Report Type: 
  Country: None (occurrence: None)
  Receive Date: 20050218
  Receipt Date: 20050207
  Transmission Date: 20050727
  Serious: Yes (Death)
  Sender: FDA-Public Use
  Company Number: 05H-153-0290086-00

PATIENT
  Age: 54 Year
  Sex: Female
  Weight: 59 kg

DRUGS (12)
  1. BUPIVACAINE HCL INJECTION 0.25% (BUPIVACAINE HYDROCHLORIDE) [Suspect]
     Indication: PAIN MANAGEMENT
  2. MORPHINE SULFATE INJ [Suspect]
     Indication: PAIN MANAGEMENT
     Dosage: 0.02 MG /ML 2ML/HR EPIDURAL, 0.02MG/ML 1.2 ML/HR EPIDURAL
     Route: 008
  3. LIDOCAINE HYDROCHLORIDE INJECTION 2% (LIDOCAINE HYDROCHLORIDE INJECTIO [Suspect]
     Indication: PAIN MANAGEMENT
     Dosage: 2 ML ONCE EPIDURAL
     Route: 008
  4. BUPIVACAINE 0.0625% (BUPIVACAINE) [Suspect]
     Indication: PAIN MANAGEMENT
     Dosage: 2ML/HOUR EPIDURAL, 1.2 ML/HOUR EPIDURAL
     Route: 008
  5. GLYCOPYRRONIUM BROMIDE [Concomitant]
  6. FENTANYL [Concomitant]
  7. THIOPENTAL SODIUM [Concomitant]
  8. ATRACURIUM [Concomitant]
  9. ISOFLURANE [Concomitant]
  10. OXYGEN [Concomitant]
  11. SODIUM CHLORIDE COMPOUND INJECTION [Concomitant]
  12. RED BLOOD CELLS [Concomitant]

REACTIONS (14)
  - ANAESTHETIC COMPLICATION [None]
  - APALLIC SYNDROME [None]
  - AREFLEXIA [None]
  - BLOOD PRESSURE ABNORMAL [None]
  - BRAIN HERNIATION [None]
  - BRAIN NEOPLASM [None]
  - CARDIAC ARREST [None]
  - DISEASE PROGRESSION [None]
  - FLUID IMBALANCE [None]
  - HYDROCEPHALUS [None]
  - LOSS OF CONSCIOUSNESS [None]
  - RESPIRATORY ARREST [None]
  - SINUS BRADYCARDIA [None]
  - TUMOUR HAEMORRHAGE [None]
